FAERS Safety Report 9220952 (Version 1)
Quarter: 2013Q2

REPORT INFORMATION
  Report Type: Report from Study
  Country: US (occurrence: US)
  Receive Date: 20130409
  Receipt Date: 20130409
  Transmission Date: 20140414
  Serious: No
  Sender: FDA-Public Use
  Company Number: US-009507513-1304USA003193

PATIENT
  Sex: 0

DRUGS (5)
  1. PRIMAXIN I.V. [Suspect]
     Indication: NOSOCOMIAL INFECTION
     Dosage: 1 G, Q8H
     Route: 042
  2. VANCOMYCIN [Concomitant]
     Dosage: 15 MG/KG, UNK
     Route: 042
  3. TOBRAMYCIN [Concomitant]
     Dosage: 7 MG/KG OF BODY WEIGHT, QD
     Route: 042
  4. CEFTAZIDIME [Concomitant]
     Dosage: 2 G, Q8H
     Route: 042
  5. AMIKACIN [Concomitant]
     Dosage: 20 MG/KG, QD
     Route: 042

REACTIONS (1)
  - Drug ineffective [Unknown]
